FAERS Safety Report 8087922-8 (Version None)
Quarter: 2012Q1

REPORT INFORMATION
  Report Type: 
  Country: None (occurrence: None)
  Receive Date: 20120128
  Receipt Date: 20110610
  Transmission Date: 20120608
  Serious: No
  Sender: FDA-Public Use
  Company Number: US-ABBOTT-11P-163-0731752-00

PATIENT
  Age: 49 Year
  Sex: Female

DRUGS (5)
  1. HUMIRA [Suspect]
     Indication: CROHN'S DISEASE
     Dates: start: 20110501
  2. VITAMIN B-12 [Concomitant]
     Indication: VITAMIN SUPPLEMENTATION
     Dosage: EVERY 2 WEEKS
  3. NEURONTIN [Concomitant]
     Indication: GASTROINTESTINAL PAIN
     Route: 048
  4. NEURONTIN [Concomitant]
     Indication: TREMOR
  5. NEURONTIN [Concomitant]
     Indication: NEURALGIA

REACTIONS (3)
  - PRURITUS [None]
  - FURUNCLE [None]
  - PSORIASIS [None]
